FAERS Safety Report 4287399-4 (Version None)
Quarter: 2004Q1

REPORT INFORMATION
  Report Type: 
  Country: None (occurrence: None)
  Receive Date: 20040205
  Receipt Date: 20040128
  Transmission Date: 20041129
  Serious: Yes (Other)
  Sender: FDA-Public Use
  Company Number: THQ2004A00139

PATIENT
  Age: 74 Year
  Sex: Female

DRUGS (4)
  1. LANSOPRAZOLE [Suspect]
     Indication: GASTROOESOPHAGEAL REFLUX DISEASE
     Dosage: 15-30 MG VARIABLE (EVERY MORNING), PER ORAL
     Route: 048
     Dates: start: 20020913
  2. RANITIDINE [Concomitant]
  3. MIGRIL (MIGRIL) (TABLETS) [Concomitant]
  4. CODEINE PHOSPHATE (CODEINE PHOSPHATE) (TABLETS) [Concomitant]

REACTIONS (1)
  - VISUAL FIELD DEFECT [None]
